FAERS Safety Report 4686368-X (Version None)
Quarter: 2005Q2

REPORT INFORMATION
  Report Type: 
  Country: None (occurrence: None)
  Receive Date: 20050606
  Receipt Date: 20050524
  Transmission Date: 20051028
  Serious: Yes (Hospitalization)
  Sender: FDA-Public Use
  Company Number: 2005079741

PATIENT
  Sex: Male

DRUGS (2)
  1. ZIPRASIDONE (CAPS)  (ZIPRASIDONE) [Suspect]
     Indication: SCHIZOAFFECTIVE DISORDER
     Dosage: 160 MG (1 IN 1 D), ORAL
     Route: 048
     Dates: start: 20050501, end: 20050501
  2. CLONAZEPAM [Concomitant]

REACTIONS (3)
  - DELIRIUM [None]
  - INSOMNIA [None]
  - MENTAL DISORDER [None]
